FAERS Safety Report 7504457-9 (Version None)
Quarter: 2011Q2

REPORT INFORMATION
  Report Type: 
  Country: None (occurrence: None)
  Receive Date: 20110525
  Receipt Date: 20091122
  Transmission Date: 20111010
  Serious: Yes (Other)
  Sender: FDA-Public Use
  Company Number: US-BAYER-200940715NA

PATIENT
  Age: 7 Month
  Weight: 5.2 kg

DRUGS (32)
  1. TRASYLOL [Suspect]
     Dosage: 12 ML, Q1HR, DRIP
     Route: 042
     Dates: start: 20060127, end: 20060128
  2. FERROUS SULFATE TAB [Concomitant]
     Dosage: 17 MG, QD, ORAL DROPS
     Route: 048
     Dates: start: 20050801
  3. ALBUMIN (HUMAN) [Concomitant]
     Dosage: 62.5MG/25CC, UNK
     Route: 042
     Dates: start: 20060126
  4. ALBUMIN (HUMAN) [Concomitant]
     Dosage: 25% 100/2ML, 100
     Dates: start: 20060127
  5. HEPARIN [Concomitant]
     Dosage: 3100 U, UNK
     Dates: start: 20060127
  6. MANNITOL [Concomitant]
     Dosage: 50 ML, X2 DOSES
     Dates: start: 20060127
  7. CEFOTAXIME [Concomitant]
     Indication: MENINGITIS
     Dosage: 250 MG, UNK
     Route: 042
     Dates: start: 20051201, end: 20051208
  8. ZEMURON [Concomitant]
     Dosage: MCG/KG/MIN
  9. PROTAMINE SULFATE [Concomitant]
     Dosage: 28 MG, UNK
     Route: 042
     Dates: start: 20060127
  10. PLATELETS [Concomitant]
     Dosage: 125 ML, UNK
     Dates: start: 20060127
  11. TRASYLOL [Suspect]
     Dosage: 150 MG, ONCE, LOADING DOSE
     Route: 042
     Dates: start: 20060127
  12. AMICAR [Concomitant]
     Dosage: 100MG/KG, Q6H
     Route: 042
     Dates: start: 20060127
  13. LASIX [Concomitant]
     Dosage: 0.5 ML, BID
     Route: 048
     Dates: start: 20050101
  14. ATROPINE [Concomitant]
     Dosage: 0.1 MG, UNK
     Dates: start: 20060127
  15. BACITRACIN [Concomitant]
     Dosage: 50000 U, ONCE
     Dates: start: 20060127
  16. POTASSIUM CHLORIDE [Concomitant]
     Dosage: 40 MEQ, UNK
     Dates: start: 20060127
  17. PLASMA [Concomitant]
     Dosage: 375 ML, UNK
     Dates: start: 20060127
  18. AMPICILLIN SODIUM [Concomitant]
     Indication: MENINGITIS
     Dosage: 140 MG, UNK
     Route: 042
     Dates: start: 20051201, end: 20051208
  19. DOPAMINE HCL [Concomitant]
     Dosage: 8.75 TOTAL, MCG/KG/MIN
     Dates: start: 20060127
  20. ANCEF [Concomitant]
     Dosage: 150 MG, UNK
     Dates: start: 20060120
  21. NIMBEX [Concomitant]
     Dosage: 12 ML, Q1HR
     Dates: start: 20060127
  22. URSODIOL [Concomitant]
     Dosage: 0.7 ML, BID
     Route: 048
     Dates: start: 20050101
  23. PROPOFOL [Concomitant]
     Dosage: 10 MG, UNK
     Dates: start: 20060127
  24. NIMBEX [Concomitant]
     Dosage: 3 MG TOTAL, MCG/MG/MIN
     Dates: start: 20060127
  25. NEOSYNEPHRINE [Concomitant]
     Dosage: 100 MCG, UNK
     Dates: start: 20060127
  26. TRASYLOL [Suspect]
     Indication: ATRIAL SEPTAL DEFECT REPAIR
     Dosage: 1 ML, ONCE, TEST DOSE
     Route: 042
     Dates: start: 20060127
  27. AUGMENTIN [Concomitant]
     Dosage: 2 ML, Q12H
     Dates: start: 20050801
  28. FENTANYL [Concomitant]
     Dosage: 100MCG TOTAL, MCG/KG/HR
     Dates: start: 20060127
  29. VITAMIN K TAB [Concomitant]
     Dosage: 1 MG, UNK
     Route: 042
     Dates: start: 20060126
  30. CARDIOPLEGIA [Concomitant]
     Dosage: 1004 ML, X7
     Dates: start: 20060127
  31. SODIUM BICARBONATE [Concomitant]
     Dosage: 50MEQ/50ML, 1 DOSE
     Dates: start: 20060127
  32. FORANE [Concomitant]
     Dosage: UNK
     Dates: start: 20060127

REACTIONS (12)
  - RENAL IMPAIRMENT [None]
  - ANXIETY [None]
  - ANHEDONIA [None]
  - RENAL INJURY [None]
  - UNEVALUABLE EVENT [None]
  - PSYCHIATRIC SYMPTOM [None]
  - INJURY [None]
  - RENAL FAILURE [None]
  - FEAR [None]
  - PAIN [None]
  - STRESS [None]
  - EMOTIONAL DISTRESS [None]
